FAERS Safety Report 9881215 (Version 3)
Quarter: 2014Q1

REPORT INFORMATION
  Report Type: Spontaneous
  Country: PT (occurrence: PT)
  Receive Date: 20140207
  Receipt Date: 20140306
  Transmission Date: 20141002
  Serious: Yes (Other)
  Sender: FDA-Public Use
  Company Number: PT-009507513-1401PRT014391

PATIENT
  Age: 37 Year
  Sex: Female

DRUGS (3)
  1. IMPLANON [Suspect]
     Indication: CONTRACEPTION
     Dosage: UNK
     Route: 059
     Dates: start: 201105, end: 2014
  2. PRIMIDONE [Interacting]
     Indication: EPILEPSY
     Dosage: SPORADICALLY
     Dates: end: 2014
  3. PRIMIDONE [Interacting]
     Indication: DIZZINESS

REACTIONS (3)
  - Abortion induced [Unknown]
  - Drug interaction [Unknown]
  - Unintended pregnancy [Recovered/Resolved]
